FAERS Safety Report 24024356 (Version 5)
Quarter: 2024Q3

REPORT INFORMATION
  Report Type: Report from Study
  Country: CN (occurrence: CN)
  Receive Date: 20240627
  Receipt Date: 20240710
  Transmission Date: 20241016
  Serious: No
  Sender: ROCHE
  Company Number: CN-ROCHE-3394801

PATIENT
  Age: 65 Year
  Sex: Female
  Weight: 55.0 kg

DRUGS (10)
  1. ALECTINIB [Suspect]
     Active Substance: ALECTINIB
     Indication: Lung cancer metastatic
     Route: 048
     Dates: start: 20211202
  2. UBIDECARENONE [Concomitant]
     Active Substance: UBIDECARENONE
     Route: 048
     Dates: start: 20211004
  3. PHOSPHOLIPID [Concomitant]
     Active Substance: PHOSPHOLIPID
     Route: 048
     Dates: start: 20220614
  4. COMPOUND GLYCYRRHIZA ORAL SOLUTION [Concomitant]
     Indication: Cough
     Route: 048
     Dates: start: 20221024
  5. ZOLEDRONIC ACID [Concomitant]
     Active Substance: ZOLEDRONIC ACID
     Dosage: CONCENTRATED SOLUTION
     Route: 042
     Dates: start: 20230303, end: 20230303
  6. ZOLEDRONIC ACID [Concomitant]
     Active Substance: ZOLEDRONIC ACID
     Dosage: CONCENTRATED SOLUTION
     Route: 042
     Dates: start: 20230410, end: 20230411
  7. ZOLEDRONIC ACID [Concomitant]
     Active Substance: ZOLEDRONIC ACID
     Dosage: CONCENTRATED SOLUTION
     Route: 042
     Dates: start: 20230509, end: 20230509
  8. DISODIUM CANTHARIDINATE AND VITAMIN B6 [Concomitant]
     Route: 042
     Dates: start: 20230410, end: 20230410
  9. METHOXYPHENAMINE HYDROCHLORIDE [Concomitant]
     Active Substance: METHOXYPHENAMINE HYDROCHLORIDE
     Indication: Cough
     Route: 048
     Dates: start: 20230303, end: 20230313
  10. LANQIN ORAL SOLUTION [Concomitant]
     Indication: Upper respiratory tract infection
     Route: 048
     Dates: start: 20230605, end: 20230610

REACTIONS (4)
  - Dermatitis [Recovered/Resolved]
  - Upper respiratory tract infection [Recovered/Resolved]
  - Hypoalbuminaemia [Recovering/Resolving]
  - Bradycardia [Not Recovered/Not Resolved]

NARRATIVE: CASE EVENT DATE: 20220516
